FAERS Safety Report 6445205-3 (Version None)
Quarter: 2009Q4

REPORT INFORMATION
  Report Type: 
  Country: None (occurrence: None)
  Receive Date: 20091118
  Receipt Date: 20090819
  Transmission Date: 20100525
  Serious: No
  Sender: FDA-Public Use
  Company Number: US-BRISTOL-MYERS SQUIBB COMPANY-14741532

PATIENT
  Age: 63 Year
  Sex: Female
  Weight: 81 kg

DRUGS (5)
  1. GLUCOPHAGE XR [Suspect]
     Indication: TYPE 2 DIABETES MELLITUS
     Dates: end: 20090701
  2. JANUVIA [Concomitant]
  3. COREG [Concomitant]
  4. HYDROCHLOROTHIAZIDE [Concomitant]
  5. LUNESTA [Concomitant]

REACTIONS (2)
  - DIARRHOEA [None]
  - WEIGHT INCREASED [None]
